FAERS Safety Report 4885881-X (Version None)
Quarter: 2006Q1

REPORT INFORMATION
  Report Type: 
  Country: None (occurrence: None)
  Receive Date: 20060117
  Receipt Date: 20060105
  Transmission Date: 20060701
  Serious: Yes (Hospitalization)
  Sender: FDA-Public Use
  Company Number: 199905-0201

PATIENT
  Age: 57 Year
  Sex: Female

DRUGS (6)
  1. PSEUDOEPHEDRINE HCL [Suspect]
     Indication: NASAL CONGESTION
     Dosage: 2 DOSES, ORAL
     Route: 048
  2. CEFACLOR [Suspect]
  3. FLUOXETINE [Concomitant]
  4. LEVOTHYROXINE SODIUM [Concomitant]
  5. NABUMETONE [Concomitant]
  6. TERFENADINE [Concomitant]

REACTIONS (4)
  - NASAL CONGESTION [None]
  - SKIN LESION [None]
  - SKIN TEST POSITIVE [None]
  - TOXIC EPIDERMAL NECROLYSIS [None]
